FAERS Safety Report 14594687 (Version 1)
Quarter: 2018Q1

REPORT INFORMATION
  Report Type: Report from Study
  Country: US (occurrence: US)
  Receive Date: 20180302
  Receipt Date: 20180302
  Transmission Date: 20180509
  Serious: Yes (Death, Hospitalization)
  Sender: FDA-Public Use
  Company Number: US-ACTELION-A-US2018-168210

PATIENT
  Age: 61 Year
  Sex: Male
  Weight: 72.56 kg

DRUGS (15)
  1. UPTRAVI [Suspect]
     Active Substance: SELEXIPAG
     Indication: PULMONARY ARTERIAL HYPERTENSION
     Dosage: 1600 MCG, BID
     Route: 048
     Dates: start: 20180115, end: 20180219
  2. OMEPRAZOLE. [Concomitant]
     Active Substance: OMEPRAZOLE
  3. AZATHIOPRINE. [Concomitant]
     Active Substance: AZATHIOPRINE
     Dosage: UNK
     Dates: start: 20180202
  4. COENZYME Q10 [Concomitant]
     Active Substance: UBIDECARENONE
  5. ASPIRIN. [Concomitant]
     Active Substance: ASPIRIN
  6. LEVOTHYROXINE. [Concomitant]
     Active Substance: LEVOTHYROXINE
  7. UPTRAVI [Suspect]
     Active Substance: SELEXIPAG
     Dosage: UNK
     Route: 048
     Dates: start: 20171127
  8. FEXOFENADINE [Concomitant]
     Active Substance: FEXOFENADINE\FEXOFENADINE HYDROCHLORIDE
     Dosage: UNK
     Dates: start: 201705
  9. NIFEDIPINE. [Concomitant]
     Active Substance: NIFEDIPINE
  10. MULTIVITAMIN [Concomitant]
     Active Substance: VITAMINS
  11. TADALAFIL [Concomitant]
     Active Substance: TADALAFIL
     Dosage: UNK
     Dates: start: 201405
  12. FLONASE [Concomitant]
     Active Substance: FLUTICASONE PROPIONATE
  13. FUROSEMIDE. [Concomitant]
     Active Substance: FUROSEMIDE
  14. AMBRISENTAN [Concomitant]
     Active Substance: AMBRISENTAN
     Dosage: UNK
     Dates: start: 201405
  15. PREDNISONE. [Concomitant]
     Active Substance: PREDNISONE
     Dosage: UNK
     Dates: start: 2014

REACTIONS (8)
  - Chills [Fatal]
  - Dyspnoea [Fatal]
  - Cardio-respiratory arrest [Fatal]
  - Pneumonia [Fatal]
  - Immunosuppression [Unknown]
  - Pyrexia [Fatal]
  - Hypoxia [Fatal]
  - Cough [Fatal]

NARRATIVE: CASE EVENT DATE: 20180214
